FAERS Safety Report 20610412 (Version 1)
Quarter: 2022Q1

REPORT INFORMATION
  Report Type: Report from Study
  Country: KR (occurrence: KR)
  Receive Date: 20220318
  Receipt Date: 20220318
  Transmission Date: 20220423
  Serious: Yes (Hospitalization)
  Sender: FDA-Public Use
  Company Number: KR-ELI_LILLY_AND_COMPANY-KR202203002879

PATIENT
  Age: 54 Year
  Sex: Female

DRUGS (3)
  1. IMLUNESTRANT [Suspect]
     Active Substance: IMLUNESTRANT
     Indication: Breast cancer
     Dosage: 400 MG, DAILY
     Route: 048
     Dates: start: 20220218, end: 20220302
  2. ABEMACICLIB [Suspect]
     Active Substance: ABEMACICLIB
     Indication: Breast cancer
     Dosage: 150 MG, BID
     Route: 048
     Dates: start: 20220218, end: 20220303
  3. TRASTUZUMAB [Suspect]
     Active Substance: TRASTUZUMAB
     Indication: Breast cancer
     Dosage: 484 MG, UNKNOWN
     Route: 065
     Dates: start: 20220218

REACTIONS (1)
  - Septic shock [Not Recovered/Not Resolved]

NARRATIVE: CASE EVENT DATE: 20220303
